FAERS Safety Report 9410998 (Version 3)
Quarter: 2013Q3

REPORT INFORMATION
  Report Type: Spontaneous
  Country: US (occurrence: US)
  Receive Date: 20130719
  Receipt Date: 20130813
  Transmission Date: 20140515
  Serious: Yes (Death, Hospitalization, Other)
  Sender: FDA-Public Use
  Company Number: US-TEVA-418889USA

PATIENT
  Sex: Male

DRUGS (2)
  1. FENTORA [Suspect]
     Indication: PAIN
     Route: 002
     Dates: start: 20130703, end: 20130714
  2. DURAGESIC [Suspect]
     Indication: PAIN
     Route: 062

REACTIONS (4)
  - Death [Fatal]
  - Hospice care [Unknown]
  - Malaise [Unknown]
  - Metastatic malignant melanoma [Unknown]
